FAERS Safety Report 17958417 (Version 2)
Quarter: 2020Q3

REPORT INFORMATION
  Report Type: Spontaneous
  Country: RU (occurrence: RU)
  Receive Date: 20200629
  Receipt Date: 20200708
  Transmission Date: 20201103
  Serious: Yes (Other)
  Sender: FDA-Public Use
  Company Number: RU-US-PROVELL PHARMACEUTICALS LLC-9129013

PATIENT
  Age: 32 Year
  Sex: Female

DRUGS (16)
  1. AQUADETRIM D3 [Concomitant]
     Indication: PROPHYLAXIS
     Dosage: 1 DROP
     Dates: start: 201908
  2. FOLIC ACID. [Concomitant]
     Active Substance: FOLIC ACID
     Indication: PROPHYLAXIS
     Dates: start: 201908, end: 20191007
  3. EUTHYROX [Suspect]
     Active Substance: LEVOTHYROXINE SODIUM
     Route: 048
     Dates: start: 201911, end: 201911
  4. EUTHYROX [Suspect]
     Active Substance: LEVOTHYROXINE SODIUM
     Route: 048
     Dates: start: 202005, end: 2020
  5. EUTHYROX [Suspect]
     Active Substance: LEVOTHYROXINE SODIUM
     Dosage: 50 MCG+ 75 MCG ALTERNATIVELY?ON 09JUN 2020 THE PATIENT TOOK 75 MCG, ON 10 JUN 50 MCG.
     Route: 048
     Dates: start: 20200609
  6. MAGNEROT                           /01486811/ [Concomitant]
     Indication: NERVOUS SYSTEM DISORDER
     Dates: start: 201910, end: 202001
  7. MALTOFER                           /00023548/ [Concomitant]
     Active Substance: IRON POLYMALTOSE
     Indication: ANAEMIA
     Dates: start: 20200223, end: 20200506
  8. EUTHYROX [Suspect]
     Active Substance: LEVOTHYROXINE SODIUM
     Route: 048
     Dates: start: 20200127, end: 20200506
  9. SORBIFER                           /00191801/ [Concomitant]
     Active Substance: ASCORBIC ACID\FERROUS SULFATE
     Indication: ANAEMIA
     Dates: start: 20200211, end: 202002
  10. EUTHYROX [Suspect]
     Active Substance: LEVOTHYROXINE SODIUM
     Indication: AUTOIMMUNE THYROIDITIS
     Dosage: BEFORE PREGNANCY
     Route: 048
     Dates: start: 201809, end: 2019
  11. ELEVIT                             /01730301/ [Concomitant]
     Active Substance: FOLIC ACID\IRON\MINERALS\VITAMINS
     Indication: PROPHYLAXIS
     Dates: start: 20191007
  12. EUTHYROX [Suspect]
     Active Substance: LEVOTHYROXINE SODIUM
     Indication: HYPOTHYROIDISM
     Dosage: DURING PREGNANCY?DOSAGE INCREASED
     Route: 048
     Dates: start: 2019, end: 20191010
  13. EUTHYROX [Suspect]
     Active Substance: LEVOTHYROXINE SODIUM
     Dosage: DOSAGE REDUCED
     Route: 048
     Dates: start: 20191011, end: 2019
  14. EUTHYROX [Suspect]
     Active Substance: LEVOTHYROXINE SODIUM
     Route: 048
     Dates: start: 20191111, end: 201911
  15. EUTHYROX [Suspect]
     Active Substance: LEVOTHYROXINE SODIUM
     Route: 048
     Dates: start: 20191201, end: 20200126
  16. EUTHYROX [Suspect]
     Active Substance: LEVOTHYROXINE SODIUM
     Dosage: DOSE REDUCED TO 50 MCG (HALF TABLET)
     Route: 048
     Dates: start: 20200507, end: 202005

REACTIONS (12)
  - Product availability issue [Recovered/Resolved]
  - Breast feeding [Not Recovered/Not Resolved]
  - Chronic tonsillitis [Recovered/Resolved]
  - Mental disorder [Recovered/Resolved]
  - Blood thyroid stimulating hormone decreased [Recovered/Resolved]
  - Normal newborn [Recovered/Resolved]
  - Apathy [Recovered/Resolved]
  - Blood thyroid stimulating hormone increased [Unknown]
  - Depression [Recovered/Resolved]
  - Maternal exposure during pregnancy [Recovered/Resolved]
  - Thyroid pain [Recovered/Resolved]
  - Depressed mood [Recovered/Resolved]

NARRATIVE: CASE EVENT DATE: 2019
